FAERS Safety Report 4882900-1 (Version None)
Quarter: 2006Q1

REPORT INFORMATION
  Report Type: 
  Country: None (occurrence: None)
  Receive Date: 20060112
  Receipt Date: 20051228
  Transmission Date: 20060701
  Serious: Yes (Hospitalization)
  Sender: FDA-Public Use
  Company Number: 2006-0009058

PATIENT
  Age: 36 Year
  Sex: Female

DRUGS (7)
  1. VIREAD [Suspect]
     Dosage: 300 MG, 1 IN 1 D, ORAL
     Route: 048
     Dates: start: 20051108
  2. EPIVIR [Suspect]
     Dosage: 1 DOSAGE FORMS, 1 IN 1 D, ORAL
     Route: 048
     Dates: start: 20051108
  3. VIRAMUNE [Suspect]
     Dosage: 1 DOSAGE FORMS, 1 IN 1 D
     Dates: start: 20051108
  4. AUGMENTIN '125' [Suspect]
     Dosage: 3 GM, 1 IN 1 D, ORAL
     Route: 048
     Dates: start: 20051201, end: 20051202
  5. IBUPROFEN [Suspect]
     Dosage: 2 IN 1 D, ORAL
     Route: 048
     Dates: start: 20051201, end: 20051202
  6. EFFERALGAN (PARACETAMOL) [Concomitant]
  7. CLARITIN [Concomitant]

REACTIONS (9)
  - ABDOMINAL PAIN [None]
  - CHILLS [None]
  - DIARRHOEA [None]
  - EYELID OEDEMA [None]
  - OEDEMA MOUTH [None]
  - PYREXIA [None]
  - RASH GENERALISED [None]
  - SWELLING FACE [None]
  - THROMBOCYTOPENIA [None]
